FAERS Safety Report 4398472-4 (Version None)
Quarter: 2004Q2

REPORT INFORMATION
  Report Type: 
  Country: None (occurrence: None)
  Receive Date: 20040621
  Receipt Date: 20040126
  Transmission Date: 20050107
  Serious: Yes (Other)
  Sender: FDA-Public Use
  Company Number: USA-2004-0012608

PATIENT
  Sex: Male

DRUGS (1)
  1. OXYCONTIN [Suspect]
     Indication: PAIN
     Dates: start: 20030601

REACTIONS (4)
  - DIZZINESS [None]
  - DRUG DEPENDENCE [None]
  - MALAISE [None]
  - NERVOUSNESS [None]
